FAERS Safety Report 8480838-4 (Version None)
Quarter: 2012Q3

REPORT INFORMATION
  Report Type: 
  Country: None (occurrence: None)
  Receive Date: 20120702
  Receipt Date: 20120622
  Transmission Date: 20120928
  Serious: Yes (Hospitalization)
  Sender: FDA-Public Use
  Company Number: US-BAYER-2012-015120

PATIENT
  Age: 17 Year
  Sex: Female
  Weight: 59 kg

DRUGS (14)
  1. YAZ [Suspect]
  2. AZITHROMYCIN [Concomitant]
     Dosage: 250 MG, BID
     Route: 048
  3. PRILOSEC [Concomitant]
  4. ACIPHEX [Concomitant]
     Dosage: 20 MG, DAILY
     Route: 048
  5. MUCINEX DM [Concomitant]
  6. SUCRALFATE [Concomitant]
  7. AMOXICILLIN [Concomitant]
     Dosage: 500 MG, UNK
  8. TRAZODONE HCL [Concomitant]
     Dosage: 150 MG, DAILY
     Route: 048
  9. PROZAC [Concomitant]
     Dosage: 20 MG, DAILY
     Route: 048
  10. OMEPRAZOLE [Concomitant]
     Dosage: 20 MG, DAILY
     Route: 048
  11. MINOCYCLINE HCL [Concomitant]
     Dosage: 50 MG, DAILY
     Route: 048
  12. FLUCONAZOLE [Concomitant]
     Dosage: 150 MG, Q2HR, PRN
     Route: 048
  13. VENTOLIN [Concomitant]
     Route: 045
  14. YAZ [Suspect]
     Indication: ACNE
     Dosage: UNK
     Dates: start: 20090101

REACTIONS (3)
  - CHOLECYSTITIS [None]
  - BILIARY DYSKINESIA [None]
  - PAIN [None]
